FAERS Safety Report 13977189 (Version 2)
Quarter: 2018Q3

REPORT INFORMATION
  Report Type: Spontaneous
  Country: US (occurrence: US)
  Receive Date: 20170914
  Receipt Date: 20180913
  Transmission Date: 20181010
  Serious: No
  Sender: FDA-Public Use
  Company Number: US-ASTELLAS-2017US022153

PATIENT
  Sex: Male

DRUGS (2)
  1. XTANDI [Suspect]
     Active Substance: ENZALUTAMIDE
     Indication: PROSTATE CANCER
     Dosage: 3 CAPSULES ON MOST DAYS AND 4 CAPSULES OCCASIONALLY
     Route: 048
     Dates: start: 20170519
  2. XTANDI [Suspect]
     Active Substance: ENZALUTAMIDE
     Route: 048
     Dates: start: 201705

REACTIONS (4)
  - Dysphagia [Unknown]
  - Treatment noncompliance [Unknown]
  - Product size issue [Unknown]
  - Dizziness [Unknown]
